FAERS Safety Report 17902698 (Version 2)
Quarter: 2020Q3

REPORT INFORMATION
  Report Type: Spontaneous
  Country: US (occurrence: US)
  Receive Date: 20200616
  Receipt Date: 20200701
  Transmission Date: 20201103
  Serious: Yes (Death, Other)
  Sender: FDA-Public Use
  Company Number: US-GILEAD-2020-0472649

PATIENT
  Age: 77 Year
  Sex: Female
  Weight: 78.9 kg

DRUGS (18)
  1. REMDESIVIR. [Suspect]
     Active Substance: REMDESIVIR
     Indication: COVID-19 PNEUMONIA
     Dosage: 200 MG, ONCE
     Route: 042
     Dates: start: 20200527, end: 20200527
  2. REMDESIVIR. [Suspect]
     Active Substance: REMDESIVIR
     Dosage: 100 MG, QD
     Route: 042
     Dates: start: 20200528, end: 20200605
  3. ENOXAPARIN [Concomitant]
     Active Substance: ENOXAPARIN
  4. ERTAPENEM. [Concomitant]
     Active Substance: ERTAPENEM SODIUM
  5. ALLOPURINOL. [Concomitant]
     Active Substance: ALLOPURINOL
  6. PANTOPRAZOLE [Concomitant]
     Active Substance: PANTOPRAZOLE
  7. PREGABALIN. [Concomitant]
     Active Substance: PREGABALIN
  8. DULOXETINE. [Concomitant]
     Active Substance: DULOXETINE
  9. INSULIN [Concomitant]
     Active Substance: INSULIN NOS
  10. FUROSEMIDE. [Concomitant]
     Active Substance: FUROSEMIDE
  11. APIXABAN [Concomitant]
     Active Substance: APIXABAN
  12. PHENYLEPHRINE [Concomitant]
     Active Substance: PHENYLEPHRINE HYDROCHLORIDE
  13. ATORVASTATIN [Concomitant]
     Active Substance: ATORVASTATIN
  14. COREG [Concomitant]
     Active Substance: CARVEDILOL
  15. METHYLPREDNISOLONE. [Concomitant]
     Active Substance: METHYLPREDNISOLONE
  16. FENTANYL. [Concomitant]
     Active Substance: FENTANYL
  17. FOLIC ACID. [Concomitant]
     Active Substance: FOLIC ACID
  18. HYDROXYCHLOROQUINE [Concomitant]
     Active Substance: HYDROXYCHLOROQUINE

REACTIONS (1)
  - Cardiac arrest [Fatal]

NARRATIVE: CASE EVENT DATE: 20200608
